FAERS Safety Report 9165441 (Version 1)
Quarter: 2013Q1

REPORT INFORMATION
  Report Type: Spontaneous
  Country: US (occurrence: None)
  Receive Date: 20130314
  Receipt Date: 20130314
  Transmission Date: 20140127
  Serious: Yes (Life-Threatening)
  Sender: FDA-Public Use
  Company Number: None

PATIENT
  Sex: 0

DRUGS (1)
  1. MEGACE ES [Suspect]
     Dosage: 1 TSP PER DAY
     Dates: start: 201309

REACTIONS (2)
  - Pulmonary thrombosis [None]
  - Thrombosis [None]
